FAERS Safety Report 8935376 (Version 1)
Quarter: 2012Q4

REPORT INFORMATION
  Report Type: Spontaneous
  Country: US (occurrence: None)
  Receive Date: 20121127
  Receipt Date: 20121127
  Transmission Date: 20130627
  Serious: Yes (Hospitalization)
  Sender: FDA-Public Use
  Company Number: None

PATIENT
  Age: 88 Year
  Sex: Male

DRUGS (6)
  1. EYELEA 2MG/0.05ML SDV [Suspect]
     Dosage: 2mg in right eye by physicia as directed
     Route: 031
     Dates: start: 20120726, end: 20121018
  2. LASIX [Concomitant]
  3. LISINOPRIL [Concomitant]
  4. CRESTOR [Concomitant]
  5. AMLODIPINE [Concomitant]
  6. PLAVIX [Concomitant]

REACTIONS (1)
  - Cardiac failure congestive [None]
